FAERS Safety Report 15819366 (Version 2)
Quarter: 2019Q1

REPORT INFORMATION
  Report Type: Spontaneous
  Country: US (occurrence: US)
  Receive Date: 20190114
  Receipt Date: 20190314
  Transmission Date: 20190417
  Serious: No
  Sender: FDA-Public Use
  Company Number: US-009507513-1901USA000519

PATIENT
  Age: 39 Year
  Sex: Female
  Weight: 67.57 kg

DRUGS (4)
  1. PREGNYL [Suspect]
     Active Substance: CHORIOGONADOTROPIN ALFA
     Indication: OVULATION INDUCTION
     Dosage: STRENGTH: 10 (UNITS NOT PROVIDED) 5000 IU, ONCE
     Route: 030
     Dates: start: 20181206, end: 20181206
  2. GONAL-F [Concomitant]
     Active Substance: FOLLITROPIN
     Indication: IN VITRO FERTILISATION
     Dosage: 75-150 IU
     Route: 058
     Dates: start: 20181126, end: 20181206
  3. MENOPUR [Concomitant]
     Active Substance: FOLLITROPIN\LUTEINIZING HORMONE
     Indication: IN VITRO FERTILISATION
     Dosage: 75-150 IU
     Route: 058
     Dates: start: 20181126, end: 20181206
  4. GANIRELIX ACETATE. [Concomitant]
     Active Substance: GANIRELIX ACETATE
     Indication: IN VITRO FERTILISATION
     Dosage: 250MCG/0.5ML
     Route: 058
     Dates: start: 20181203, end: 20181206

REACTIONS (1)
  - Drug ineffective [Recovered/Resolved with Sequelae]

NARRATIVE: CASE EVENT DATE: 20181208
